FAERS Safety Report 23959357 (Version 1)
Quarter: 2024Q2

REPORT INFORMATION
  Report Type: Spontaneous
  Country: US (occurrence: US)
  Receive Date: 20240611
  Receipt Date: 20240611
  Transmission Date: 20240715
  Serious: Yes (Other)
  Sender: FDA-Public Use
  Company Number: US-ABBVIE-5790243

PATIENT
  Sex: Female

DRUGS (2)
  1. REFRESH PLUS [Suspect]
     Active Substance: CARBOXYMETHYLCELLULOSE SODIUM
     Indication: Dry eye
     Dosage: TIME INTERVAL: 0.33333333 DAYS: 1 TO 2 DROPS EACH EYE, STRENGTH: 5MG/ML, PF
     Route: 047
     Dates: start: 202406, end: 20240605
  2. REFRESH PLUS [Suspect]
     Active Substance: CARBOXYMETHYLCELLULOSE SODIUM
     Indication: Dry eye
     Dosage: STRENGTH: 5MG/ML, STARTED 10 YEARS AGO OR MORE NOW,PF
     Route: 047

REACTIONS (4)
  - Eye operation [Unknown]
  - Eye irritation [Recovered/Resolved]
  - Eye pain [Recovered/Resolved]
  - Vision blurred [Unknown]
